FAERS Safety Report 9251393 (Version 3)
Quarter: 2013Q4

REPORT INFORMATION
  Report Type: Spontaneous
  Country: US (occurrence: US)
  Receive Date: 20130424
  Receipt Date: 20131004
  Transmission Date: 20140711
  Serious: Yes (Disabling, Other)
  Sender: FDA-Public Use
  Company Number: US-ASTRAZENECA-2013SE27488

PATIENT
  Age: 84 Year
  Sex: Female
  Weight: 87.5 kg

DRUGS (20)
  1. NEXIUM [Suspect]
     Indication: GASTROOESOPHAGEAL REFLUX DISEASE
     Route: 048
  2. NEXIUM [Suspect]
     Indication: GASTROOESOPHAGEAL REFLUX DISEASE
     Route: 048
     Dates: start: 2002, end: 201103
  3. NEXIUM [Suspect]
     Indication: GASTROOESOPHAGEAL REFLUX DISEASE
     Route: 048
     Dates: start: 20030528
  4. NEXIUM [Suspect]
     Indication: GASTROOESOPHAGEAL REFLUX DISEASE
     Route: 048
     Dates: start: 20060318
  5. PRILOSEC [Suspect]
     Route: 048
  6. PANTOPRAZOLE [Concomitant]
     Indication: GASTROOESOPHAGEAL REFLUX DISEASE
     Dates: start: 201104
  7. HYDROCHLOROTHIAZIDE [Concomitant]
     Indication: CARDIAC DISORDER
  8. AMLODIPIN [Concomitant]
  9. CALCIUM VIT C [Concomitant]
  10. MULTIVITAMIN [Concomitant]
  11. LEVOTHYROXIN/SYNTHROID [Concomitant]
     Route: 048
     Dates: start: 20050923
  12. LISINOPRIL [Concomitant]
     Route: 048
     Dates: start: 20030812
  13. PREMARIN [Concomitant]
     Route: 048
     Dates: start: 20030812
  14. AMOXICILLIN [Concomitant]
     Dosage: 500 MG  TAKE 6 CS 1 HOUR BEFORE APPT AND 3 CS 6 HOURS LATER
     Route: 048
     Dates: start: 20050228
  15. FUROSEMIDE [Concomitant]
     Dates: start: 20040726
  16. VALTREX [Concomitant]
     Route: 048
     Dates: start: 20070809
  17. ACYCLOVIR/ZOVITRAX [Concomitant]
     Route: 048
     Dates: start: 20070719
  18. METOPROLOL [Concomitant]
     Route: 048
     Dates: start: 20070914
  19. RANITIDINE [Concomitant]
     Dates: start: 2011
  20. TUMS [Concomitant]
     Dosage: AS NEEDED

REACTIONS (11)
  - Arthritis [Unknown]
  - Cerebrovascular accident [Unknown]
  - Bone disorder [Unknown]
  - Multiple fractures [Unknown]
  - Osteopenia [Unknown]
  - Cataract [Unknown]
  - Vitamin D deficiency [Unknown]
  - Osteoarthritis [Unknown]
  - Bone density decreased [Unknown]
  - Osteoporosis [Unknown]
  - Depression [Unknown]
